FAERS Safety Report 14694777 (Version 1)
Quarter: 2018Q1

REPORT INFORMATION
  Report Type: Spontaneous
  Country: US (occurrence: US)
  Receive Date: 20180329
  Receipt Date: 20180329
  Transmission Date: 20180509
  Serious: Yes (Other)
  Sender: FDA-Public Use
  Company Number: US-AKORN PHARMACEUTICALS-2018AKN00380

PATIENT
  Age: 16 Year
  Sex: Male
  Weight: 61.68 kg

DRUGS (1)
  1. MYORISAN [Suspect]
     Active Substance: ISOTRETINOIN
     Indication: ACNE
     Dosage: 40 MG, 1X/DAY
     Dates: start: 20180122, end: 20180313

REACTIONS (4)
  - Hypokinesia [Recovering/Resolving]
  - Coordination abnormal [Recovering/Resolving]
  - Off label use [Recovered/Resolved]
  - Flat affect [Recovering/Resolving]

NARRATIVE: CASE EVENT DATE: 2018
